FAERS Safety Report 13861870 (Version 2)
Quarter: 2017Q3

REPORT INFORMATION
  Report Type: Report from Study
  Country: US (occurrence: US)
  Receive Date: 20170811
  Receipt Date: 20170906
  Transmission Date: 20171127
  Serious: No
  Sender: FDA-Public Use
  Company Number: PHEH2017US024716

PATIENT
  Age: 68 Year
  Sex: Female

DRUGS (1)
  1. COSENTYX [Suspect]
     Active Substance: SECUKINUMAB
     Indication: PSORIATIC ARTHROPATHY
     Dosage: 300 MG, QMO
     Route: 058

REACTIONS (7)
  - Body temperature increased [Unknown]
  - Arthralgia [Unknown]
  - Malaise [Unknown]
  - Joint stiffness [Unknown]
  - Joint swelling [Unknown]
  - Erythema [Unknown]
  - Infection [Unknown]
